FAERS Safety Report 23588551 (Version 1)
Quarter: 2024Q1

REPORT INFORMATION
  Report Type: Spontaneous
  Country: PT (occurrence: PT)
  Receive Date: 20240302
  Receipt Date: 20240302
  Transmission Date: 20240410
  Serious: Yes (Other)
  Sender: FDA-Public Use
  Company Number: None

PATIENT
  Age: 68 Year
  Sex: Male
  Weight: 82 kg

DRUGS (7)
  1. OXALIPLATIN [Suspect]
     Active Substance: OXALIPLATIN
     Indication: Rectal adenocarcinoma
     Dosage: 138 MG
     Dates: start: 20240131, end: 20240131
  2. LEUCOVORIN CALCIUM [Concomitant]
     Active Substance: LEUCOVORIN CALCIUM
     Dosage: 528 MG IV (DIA 1)
     Dates: start: 20240131, end: 20240131
  3. CALCIUM GLUCONATE [Concomitant]
     Active Substance: CALCIUM GLUCONATE
     Dosage: (4,46 MEQ/10 ML) IV (DIA 1)
     Dates: start: 20240131, end: 20240131
  4. DEXAMETHASONE [Concomitant]
     Active Substance: DEXAMETHASONE
     Dosage: 20 MG IV (DIA 1)
     Dates: start: 20240131, end: 20240131
  5. MAGNESIUM SULFATE [Concomitant]
     Active Substance: MAGNESIUM SULFATE\MAGNESIUM SULFATE HEPTAHYDRATE
     Dosage: (16 MEQ/10 ML MG  2 G), 8MEQ IV (DIA 1)
     Dates: start: 20240131, end: 20240131
  6. ONDANSETRON [Concomitant]
     Active Substance: ONDANSETRON
     Dosage: 8 MG 12/12H, ORAL (DO DIA 1 AO 3)
     Dates: start: 20240131, end: 20240131
  7. ONDANSETRON [Concomitant]
     Active Substance: ONDANSETRON
     Dosage: 8 MG IV (DIA 1)
     Dates: start: 20240131, end: 20240131

REACTIONS (4)
  - Tremor [Recovered/Resolved]
  - Diarrhoea [Recovered/Resolved]
  - Product substitution issue [Recovered/Resolved]
  - Pyrexia [Recovered/Resolved]

NARRATIVE: CASE EVENT DATE: 20240131
